FAERS Safety Report 23200482 (Version 1)
Quarter: 2023Q4

REPORT INFORMATION
  Report Type: Report from Study
  Country: US (occurrence: US)
  Receive Date: 20231118
  Receipt Date: 20231118
  Transmission Date: 20240110
  Serious: Yes (Other)
  Sender: FDA-Public Use
  Company Number: US-002147023-NVSC2023US242440

PATIENT
  Sex: Female

DRUGS (2)
  1. COSENTYX [Suspect]
     Active Substance: SECUKINUMAB
     Indication: Psoriasis
     Dosage: UNK
     Route: 065
  2. COSENTYX [Suspect]
     Active Substance: SECUKINUMAB
     Indication: Psoriatic arthropathy

REACTIONS (7)
  - Psoriatic arthropathy [Unknown]
  - Joint stiffness [Unknown]
  - Arthralgia [Unknown]
  - Rebound psoriasis [Unknown]
  - Skin hyperpigmentation [Unknown]
  - Skin exfoliation [Unknown]
  - Drug ineffective [Unknown]
